FAERS Safety Report 12831962 (Version 1)
Quarter: 2016Q4

REPORT INFORMATION
  Report Type: Other
  Country: GB (occurrence: US)
  Receive Date: 20161010
  Receipt Date: 20161010
  Transmission Date: 20170207
  Serious: Yes (Hospitalization, Other)
  Sender: FDA-Public Use
  Company Number: US-CLARIS PHARMASERVICES-1058135

PATIENT
  Age: 31 Year
  Sex: Female

DRUGS (1)
  1. HALOPERIDOL. [Suspect]
     Active Substance: HALOPERIDOL
     Indication: BIPOLAR DISORDER

REACTIONS (3)
  - Dystonia [Recovered/Resolved]
  - Kyphosis [Recovered/Resolved]
  - Vertebral osteophyte [Recovered/Resolved]
